FAERS Safety Report 11136143 (Version 1)
Quarter: 2015Q2

REPORT INFORMATION
  Report Type: Spontaneous
  Country: US (occurrence: US)
  Receive Date: 20150526
  Receipt Date: 20150526
  Transmission Date: 20150821
  Serious: Yes (Hospitalization)
  Sender: FDA-Public Use
  Company Number: US-PFIZER INC-2015172399

PATIENT
  Age: 64 Year
  Sex: Female

DRUGS (2)
  1. SILDENAFIL CITRATE. [Suspect]
     Active Substance: SILDENAFIL CITRATE
     Dosage: UNK
  2. ANDROGEL [Suspect]
     Active Substance: TESTOSTERONE
     Dosage: 1 %, 1X/DAY (1% 1 PUMP PER DAY)

REACTIONS (2)
  - Liver disorder [Unknown]
  - Cholelithiasis [Unknown]
